FAERS Safety Report 7750208-2 (Version None)
Quarter: 2011Q3

REPORT INFORMATION
  Report Type: 
  Country: None (occurrence: None)
  Receive Date: 20110914
  Receipt Date: 20110912
  Transmission Date: 20111222
  Serious: Yes (Other)
  Sender: FDA-Public Use
  Company Number: JP-PFIZER INC-2011208948

PATIENT
  Age: 40 Year
  Sex: Female

DRUGS (3)
  1. ZOLOFT [Concomitant]
     Dosage: UNK
     Dates: end: 20110501
  2. VARENICLINE TARTRATE [Suspect]
     Indication: SMOKING CESSATION THERAPY
     Dosage: 2 MG/DAY
     Route: 048
     Dates: start: 20110401, end: 20110501
  3. DEPAS [Concomitant]
     Dosage: UNK
     Route: 048
     Dates: start: 20110501

REACTIONS (2)
  - NAUSEA [None]
  - ABORTION SPONTANEOUS [None]
